FAERS Safety Report 24707195 (Version 1)
Quarter: 2024Q4

REPORT INFORMATION
  Report Type: Spontaneous
  Country: JP (occurrence: JP)
  Receive Date: 20241206
  Receipt Date: 20241206
  Transmission Date: 20250114
  Serious: Yes (Other)
  Sender: GENMAB
  Company Number: JP-GENMAB-2024-04440

PATIENT
  Age: 80 Year
  Sex: Female

DRUGS (1)
  1. EPKINLY [Suspect]
     Active Substance: EPCORITAMAB-BYSP
     Indication: Diffuse large B-cell lymphoma
     Dosage: UNK, 1 CYCLE, 2 CYCLE
     Route: 065
     Dates: start: 202408

REACTIONS (2)
  - Diffuse large B-cell lymphoma [Unknown]
  - Tumour pseudoprogression [Unknown]

NARRATIVE: CASE EVENT DATE: 20240901
